FAERS Safety Report 10688483 (Version 1)
Quarter: 2014Q4

REPORT INFORMATION
  Report Type: Spontaneous
  Country: IT (occurrence: None)
  Receive Date: 20141231
  Receipt Date: 20141231
  Transmission Date: 20150529
  Serious: Yes (Death, Hospitalization)
  Sender: FDA-Public Use
  Company Number: INT_00585_2014

PATIENT
  Age: 75 Year
  Sex: Female

DRUGS (2)
  1. PACLITAXEL (PACLITAXEL) (HQ SPECIALTY) [Suspect]
     Active Substance: PACLITAXEL
     Indication: OVARIAN EPITHELIAL CANCER
     Dosage: 5 CYCLES, NOT OTHERWISE SPECIFIED
     Route: 042
  2. CARBOPLATIN (CARBOPLATIN) [Suspect]
     Active Substance: CARBOPLATIN
     Indication: OVARIAN EPITHELIAL CANCER
     Dosage: AUC 4 FOR 5 CYCLES,  NOT OTHERWISE SPECIFIED
     Route: 042

REACTIONS (11)
  - Pyrexia [None]
  - Asthenia [None]
  - Haematemesis [None]
  - Anuria [None]
  - Clostridium difficile colitis [None]
  - Abdominal pain [None]
  - Haemoglobin decreased [None]
  - Abdominal tenderness [None]
  - Colitis [None]
  - Diarrhoea [None]
  - Sepsis [None]
